FAERS Safety Report 7462781-2 (Version None)
Quarter: 2011Q2

REPORT INFORMATION
  Report Type: 
  Country: None (occurrence: None)
  Receive Date: 20110506
  Receipt Date: 20110502
  Transmission Date: 20111010
  Serious: Yes (Other)
  Sender: FDA-Public Use
  Company Number: US-PFIZER INC-2011094828

PATIENT
  Sex: Female
  Weight: 68.934 kg

DRUGS (2)
  1. XALATAN [Suspect]
     Indication: GLAUCOMA
     Dosage: ONE DROP IN EACH EYE, 1X/DAY
     Route: 047
  2. XALATAN [Suspect]
     Indication: OPTIC NERVE DISORDER

REACTIONS (3)
  - VISION BLURRED [None]
  - NIGHT BLINDNESS [None]
  - VISUAL ACUITY REDUCED [None]
